FAERS Safety Report 17314534 (Version 1)
Quarter: 2020Q1

REPORT INFORMATION
  Report Type: Spontaneous
  Country: US (occurrence: US)
  Receive Date: 20200123
  Receipt Date: 20200123
  Transmission Date: 20200409
  Serious: No
  Sender: FDA-Public Use
  Company Number: None

PATIENT
  Age: 45 Year
  Sex: Male
  Weight: 112.5 kg

DRUGS (6)
  1. TRADER JOE^S MULTIVITAMIN [Concomitant]
  2. VITAMIN D [Concomitant]
     Active Substance: VITAMIN D NOS
  3. VENLAFAXINE 175 MG [Concomitant]
  4. ADDERALL [Concomitant]
     Active Substance: AMPHETAMINE ASPARTATE\AMPHETAMINE SULFATE\DEXTROAMPHETAMINE SACCHARATE\DEXTROAMPHETAMINE SULFATE
  5. LAMOTRIGINE. [Suspect]
     Active Substance: LAMOTRIGINE
     Indication: DEPRESSION
     Dosage: ?          QUANTITY:1 TABLET(S);?
     Route: 048
     Dates: end: 20200123
  6. CLONAZEPAM 0.5 MG [Concomitant]
     Active Substance: CLONAZEPAM

REACTIONS (5)
  - Recalled product administered [None]
  - Dizziness [None]
  - Hyperhidrosis [None]
  - Insomnia [None]
  - Asthenia [None]

NARRATIVE: CASE EVENT DATE: 20200123
